FAERS Safety Report 6727738-5 (Version None)
Quarter: 2010Q2

REPORT INFORMATION
  Report Type: 
  Country: None (occurrence: None)
  Receive Date: 20100517
  Receipt Date: 20100506
  Transmission Date: 20101027
  Serious: Yes (Other)
  Sender: FDA-Public Use
  Company Number: BR-ROCHE-702055

PATIENT
  Sex: Female
  Weight: 51 kg

DRUGS (6)
  1. BONIVA [Suspect]
     Indication: OSTEOPOROSIS
     Dosage: FREQUENCY; ONLY ONCE
     Route: 048
     Dates: start: 20100201, end: 20100201
  2. CALCIUM [Concomitant]
     Dosage: AT NIGHT; CHELATED CALCIUM
     Route: 048
     Dates: start: 20070101
  3. ALENDRONATE SODIUM [Concomitant]
     Dates: start: 20070101
  4. METFORMIN HYDROCHLORIDE [Concomitant]
     Dosage: 2 TAB/DAY
     Route: 048
     Dates: start: 20070101
  5. SIMVASTATIN [Concomitant]
     Dosage: 1 TAB/DAY AT NIGHT
     Route: 048
     Dates: start: 20070101
  6. OMEPRAZOLE [Concomitant]
     Dosage: 2 TAB/DAY
     Route: 048
     Dates: start: 20091001

REACTIONS (8)
  - ABDOMINAL DISTENSION [None]
  - ABDOMINAL PAIN UPPER [None]
  - GAIT DISTURBANCE [None]
  - GASTRIC POLYPS [None]
  - GASTRITIS EROSIVE [None]
  - HEADACHE [None]
  - MEDICATION ERROR [None]
  - NAUSEA [None]
